FAERS Safety Report 8352491-1 (Version None)
Quarter: 2012Q2

REPORT INFORMATION
  Report Type: 
  Country: None (occurrence: None)
  Receive Date: 20120511
  Receipt Date: 20120507
  Transmission Date: 20120825
  Serious: Yes (Hospitalization, Other)
  Sender: FDA-Public Use
  Company Number: PHEH2009US16951

PATIENT
  Sex: Female

DRUGS (25)
  1. DIOVAN [Concomitant]
     Dosage: 150 MG, UNK
  2. CLONAZEPAM [Concomitant]
  3. ZYPREXA [Concomitant]
  4. ALPRAZOLAM [Concomitant]
     Dosage: 0.5 MG, TID
     Route: 048
  5. TOPROL-XL [Concomitant]
  6. LASIX [Concomitant]
  7. DOXYCYCLINE HYCLATE [Concomitant]
     Dosage: 100 MG, UNK
     Route: 048
  8. WARFARIN SODIUM [Concomitant]
     Dosage: 5 MG, UNK
     Route: 048
  9. ZOMETA [Suspect]
     Route: 042
  10. COMBIVENT [Concomitant]
  11. AREDIA [Suspect]
  12. PROCRIT [Concomitant]
  13. PERIDEX [Concomitant]
  14. TRUVADA [Concomitant]
  15. VIRAMUNE [Concomitant]
  16. OMEPRAZOLE [Concomitant]
  17. TRAZODONE HCL [Concomitant]
  18. NEXIUM [Concomitant]
  19. OXYCONTIN [Concomitant]
  20. HYDROCODONE BITARTRATE AND ACETAMINOPHEN [Concomitant]
     Dosage: 1 DF, Q6H
  21. ALBUTEROL [Concomitant]
  22. SYNTHROID [Concomitant]
     Dosage: 0.01 MG, UNK
  23. LOTREL [Concomitant]
     Dosage: 5/20 DAILY
  24. PAXIL [Concomitant]
  25. HEPARIN [Concomitant]
     Route: 042

REACTIONS (100)
  - HEPATITIS C [None]
  - ANXIETY [None]
  - TOOTH ABSCESS [None]
  - MENTAL STATUS CHANGES [None]
  - HYPERKINESIA [None]
  - HYPOTENSION [None]
  - HYPERGLYCAEMIA [None]
  - CHOLESTASIS [None]
  - MULTIPLE MYELOMA [None]
  - ERYTHEMA [None]
  - DENTAL CARIES [None]
  - OSTEOMYELITIS [None]
  - MOUTH HAEMORRHAGE [None]
  - PRIMARY SEQUESTRUM [None]
  - BACTERIAL DISEASE CARRIER [None]
  - HYPERTENSION [None]
  - CELLULITIS [None]
  - CHRONIC SINUSITIS [None]
  - CHRONIC OBSTRUCTIVE PULMONARY DISEASE [None]
  - WEIGHT INCREASED [None]
  - VITAMIN D DEFICIENCY [None]
  - DECREASED INTEREST [None]
  - FISTULA [None]
  - EXPOSED BONE IN JAW [None]
  - TOOTH LOSS [None]
  - MASTICATION DISORDER [None]
  - PAIN IN JAW [None]
  - HYPOTHYROIDISM [None]
  - GALLBLADDER ENLARGEMENT [None]
  - ACQUIRED IMMUNODEFICIENCY SYNDROME [None]
  - CHEST PAIN [None]
  - BRONCHIAL SECRETION RETENTION [None]
  - OEDEMA PERIPHERAL [None]
  - RHINITIS ALLERGIC [None]
  - HAEMATOMA [None]
  - FEMUR FRACTURE [None]
  - FOOT FRACTURE [None]
  - PNEUMONIA [None]
  - ASTHENIA [None]
  - FATIGUE [None]
  - DIARRHOEA [None]
  - FACE OEDEMA [None]
  - DEEP VEIN THROMBOSIS [None]
  - BASEDOW'S DISEASE [None]
  - HYPOVENTILATION [None]
  - THROMBOPHLEBITIS SUPERFICIAL [None]
  - ABDOMINAL HERNIA [None]
  - CORONARY ARTERY DISEASE [None]
  - CARDIOMEGALY [None]
  - NODULE [None]
  - HYPOPHOSPHATAEMIA [None]
  - URINARY TRACT INFECTION [None]
  - DECREASED APPETITE [None]
  - PATHOLOGICAL FRACTURE [None]
  - ORAL CANDIDIASIS [None]
  - INJURY [None]
  - RENAL FAILURE [None]
  - CHOLELITHIASIS [None]
  - BILIARY DILATATION [None]
  - HERNIA PAIN [None]
  - SEPSIS [None]
  - HIP FRACTURE [None]
  - DYSPNOEA [None]
  - GASTRITIS EROSIVE [None]
  - PULMONARY EMBOLISM [None]
  - PAIN [None]
  - SECRETION DISCHARGE [None]
  - RETINOPATHY [None]
  - DEPRESSION [None]
  - SPINAL OSTEOARTHRITIS [None]
  - MYALGIA [None]
  - GASTROOESOPHAGEAL REFLUX DISEASE [None]
  - HEADACHE [None]
  - BRONCHITIS [None]
  - BONE NEOPLASM MALIGNANT [None]
  - LEUKAEMIA [None]
  - OSTEONECROSIS OF JAW [None]
  - ECCHYMOSIS [None]
  - IRON DEFICIENCY ANAEMIA [None]
  - RESPIRATORY FAILURE [None]
  - PALPITATIONS [None]
  - ACTINOMYCOSIS [None]
  - THROMBOCYTOPENIA [None]
  - BACK PAIN [None]
  - DEHYDRATION [None]
  - OCCULT BLOOD [None]
  - THYROID CANCER [None]
  - TOXIC NEUROPATHY [None]
  - VASCULAR CALCIFICATION [None]
  - COLONIC POLYP [None]
  - MYELODYSPLASTIC SYNDROME [None]
  - BREAST CANCER [None]
  - EJECTION FRACTION DECREASED [None]
  - CATARACT [None]
  - OSTEOPENIA [None]
  - HEPATIC STEATOSIS [None]
  - LIMB INJURY [None]
  - LACUNAR INFARCTION [None]
  - RASH [None]
  - OSTEOARTHRITIS [None]
